FAERS Safety Report 4871162-7 (Version None)
Quarter: 2005Q4

REPORT INFORMATION
  Report Type: 
  Country: None (occurrence: None)
  Receive Date: 20051229
  Receipt Date: 20051212
  Transmission Date: 20060501
  Serious: Yes (Hospitalization)
  Sender: FDA-Public Use
  Company Number: USA0506101535

PATIENT
  Age: 40 Year
  Sex: Female
  Weight: 105.2 kg

DRUGS (2)
  1. CYMBALTA [Suspect]
     Indication: STRESS
     Dosage: 30 MG,
     Dates: start: 20050523, end: 20050101
  2. HYDROCHLOROTHIAZIDE [Concomitant]

REACTIONS (26)
  - ABDOMINAL PAIN [None]
  - ABDOMINAL PAIN UPPER [None]
  - ALANINE AMINOTRANSFERASE INCREASED [None]
  - ANOREXIA [None]
  - ARTHRALGIA [None]
  - ASPARTATE AMINOTRANSFERASE INCREASED [None]
  - CHILLS [None]
  - CHROMATURIA [None]
  - DEPRESSION [None]
  - DIARRHOEA [None]
  - DIZZINESS [None]
  - DYSPEPSIA [None]
  - FAECES PALE [None]
  - FATIGUE [None]
  - GAMMA-GLUTAMYLTRANSFERASE INCREASED [None]
  - HEADACHE [None]
  - HEPATIC ENZYME INCREASED [None]
  - HYPERSOMNIA [None]
  - LIPASE INCREASED [None]
  - MUSCULOSKELETAL DISCOMFORT [None]
  - NERVOUSNESS [None]
  - PYREXIA [None]
  - SERUM FERRITIN INCREASED [None]
  - SMOOTH MUSCLE ANTIBODY POSITIVE [None]
  - VIRAL INFECTION [None]
  - WEIGHT INCREASED [None]
